FAERS Safety Report 14332520 (Version 2)
Quarter: 2018Q1

REPORT INFORMATION
  Report Type: Report from Study
  Country: CO (occurrence: CO)
  Receive Date: 20171228
  Receipt Date: 20180112
  Transmission Date: 20180509
  Serious: Yes (Hospitalization)
  Sender: FDA-Public Use
  Company Number: CO-INCYTE CORPORATION-2017IN011013

PATIENT

DRUGS (2)
  1. OMEPRAZOLE. [Concomitant]
     Active Substance: OMEPRAZOLE
     Indication: GASTRITIS
     Route: 065
  2. JAKAVI [Suspect]
     Active Substance: RUXOLITINIB
     Indication: MYELOFIBROSIS
     Dosage: 20 MG, BID
     Route: 048
     Dates: start: 20170606

REACTIONS (9)
  - Pain [Unknown]
  - Platelet count decreased [Recovering/Resolving]
  - Dizziness [Unknown]
  - General physical condition abnormal [Unknown]
  - Lung disorder [Unknown]
  - Blood sodium decreased [Unknown]
  - Chest pain [Unknown]
  - Psychiatric symptom [Unknown]
  - Nasopharyngitis [Unknown]
